FAERS Safety Report 12905682 (Version 3)
Quarter: 2018Q4

REPORT INFORMATION
  Report Type: Spontaneous
  Country: NL (occurrence: NL)
  Receive Date: 20161103
  Receipt Date: 20181212
  Transmission Date: 20190204
  Serious: Yes (Other)
  Sender: FDA-Public Use
  Company Number: NL-SUN PHARMACEUTICAL INDUSTRIES LTD-2016RR-126998

PATIENT
  Age: 33 Year
  Sex: Female

DRUGS (8)
  1. ETHINYLESTRADIOL/LEVONORGES MYL TB OMH 0,03/0,15MG [Suspect]
     Active Substance: ETHINYL ESTRADIOL\LEVONORGESTREL
     Indication: CONTRACEPTION
     Dosage: ONCE DAILY 1 TABLET FOR A PERIOD OF 3 WEEKS, DISCONTINUE TREATMENT AFTERWARDS FOR 1 WEEK
     Route: 048
     Dates: start: 20150302, end: 20150302
  2. OMECAT CAPSULE MSR 40MG [Concomitant]
     Active Substance: OMEPRAZOLE
     Indication: PRODUCT USED FOR UNKNOWN INDICATION
     Dosage: 2 DD 1
     Route: 048
  3. DESMOPRESSINE ACETAAT SANDOZ TABLET 0,2MG [Concomitant]
     Indication: PRODUCT USED FOR UNKNOWN INDICATION
     Dosage: 1 DD 2
     Route: 048
  4. CLARITROMYCINE 500 RANBAXY, FILMOMHULDE TABLETTEN 500 MG [Suspect]
     Active Substance: CLARITHROMYCIN
     Indication: PHARYNGITIS
     Dosage: 500 MG, BID
     Route: 048
     Dates: start: 20160913
  5. DICLOFENAC NATRIUM SANDOZ TABLET MSR 50MG [Concomitant]
     Indication: PRODUCT USED FOR UNKNOWN INDICATION
     Dosage: 1DD 1-2 X PER DAY 1 TABLET
     Route: 048
  6. CODEINEFOSFAAT RP TABLET 20MG [Concomitant]
     Indication: PRODUCT USED FOR UNKNOWN INDICATION
     Dosage: 1 DD 1 VN ZN
     Route: 048
  7. AZITROMYCINE SANDOZ TABLET OMHULD 250MG [Suspect]
     Active Substance: AZITHROMYCIN
     Indication: LUNG INFECTION
     Dosage: 3 KEER PER WEEK 1 STUK(S), EXTRA INFO: (NIET GEBRUIKT TIJDENS KUUR CLARITROMYCINE
     Route: 048
     Dates: start: 20160902, end: 20160902
  8. VESICARE [Concomitant]
     Active Substance: SOLIFENACIN SUCCINATE
     Indication: PRODUCT USED FOR UNKNOWN INDICATION
     Dosage: 5 MG, QD
     Route: 048

REACTIONS (2)
  - Product complaint [Not Recovered/Not Resolved]
  - Unintended pregnancy [Not Recovered/Not Resolved]

NARRATIVE: CASE EVENT DATE: 20161014
